FAERS Safety Report 7399189-4 (Version None)
Quarter: 2011Q1

REPORT INFORMATION
  Report Type: 
  Country: None (occurrence: None)
  Receive Date: 20110301
  Receipt Date: 20100514
  Transmission Date: 20110831
  Serious: Yes (Hospitalization)
  Sender: FDA-Public Use
  Company Number: RB-09273-2010

PATIENT
  Age: 52 Year
  Sex: Male

DRUGS (1)
  1. SUBOXONE [Suspect]
     Indication: PAIN
     Dosage: (SUBLINGUAL)
     Route: 060

REACTIONS (2)
  - PAIN [None]
  - CHEST PAIN [None]
